FAERS Safety Report 8282983-5 (Version None)
Quarter: 2012Q2

REPORT INFORMATION
  Report Type: 
  Country: None (occurrence: None)
  Receive Date: 20120413
  Receipt Date: 20111121
  Transmission Date: 20120825
  Serious: Yes (Other)
  Sender: FDA-Public Use
  Company Number: US-ROCHE-1015491

PATIENT
  Sex: Female

DRUGS (2)
  1. LUCENTIS [Suspect]
     Indication: VITREOUS FLOATERS
     Route: 047
     Dates: start: 20111026
  2. LUCENTIS [Suspect]
     Indication: VISUAL ACUITY REDUCED

REACTIONS (3)
  - VITREOUS FLOATERS [None]
  - HYPOPYON [None]
  - VISUAL ACUITY REDUCED [None]
